FAERS Safety Report 21783520 (Version 2)
Quarter: 2023Q1

REPORT INFORMATION
  Report Type: Spontaneous
  Country: US (occurrence: US)
  Receive Date: 20221227
  Receipt Date: 20230317
  Transmission Date: 20230418
  Serious: Yes (Other)
  Sender: FDA-Public Use
  Company Number: US-PFIZER INC-PV202200126691

PATIENT
  Age: 64 Year
  Sex: Female

DRUGS (1)
  1. XELJANZ XR [Suspect]
     Active Substance: TOFACITINIB CITRATE
     Dosage: 11 MG

REACTIONS (11)
  - Haemorrhage [Unknown]
  - Drug ineffective [Unknown]
  - Sinus disorder [Unknown]
  - Temperature intolerance [Unknown]
  - Epistaxis [Unknown]
  - Sensitivity to weather change [Unknown]
  - Nasal congestion [Unknown]
  - Mouth haemorrhage [Unknown]
  - Asthenia [Unknown]
  - Speech disorder [Unknown]
  - Hypersensitivity [Unknown]
